FAERS Safety Report 11879006 (Version 4)
Quarter: 2016Q1

REPORT INFORMATION
  Report Type: Report from Study
  Country: TW (occurrence: TW)
  Receive Date: 20151230
  Receipt Date: 20160121
  Transmission Date: 20160526
  Serious: Yes (Other)
  Sender: FDA-Public Use
  Company Number: TW-JNJFOC-20151223556

PATIENT
  Age: 59 Year
  Sex: Male
  Weight: 65 kg

DRUGS (1)
  1. STELARA [Suspect]
     Active Substance: USTEKINUMAB
     Indication: PSORIASIS
     Dosage: 1ST AND 2ND DOSE 45MG ONCE IN 4 WEEK, FOLLOWED BY ONCE IN 12 WEEK.
     Route: 058
     Dates: start: 20150924

REACTIONS (1)
  - Latent tuberculosis [Unknown]

NARRATIVE: CASE EVENT DATE: 20151117
